FAERS Safety Report 6144029-4 (Version None)
Quarter: 2009Q2

REPORT INFORMATION
  Report Type: 
  Country: None (occurrence: None)
  Receive Date: 20090401
  Receipt Date: 20090318
  Transmission Date: 20091009
  Serious: Yes (Hospitalization)
  Sender: FDA-Public Use
  Company Number: GB-DEXPHARM-20090350

PATIENT
  Sex: Male

DRUGS (3)
  1. OMEPRAZOLE [Suspect]
     Dosage: 10 MG MILLGRAM(S), 2 IN 1 DAY,  ORAL
     Route: 048
     Dates: start: 20090109, end: 20090209
  2. LYMECYCLINE [Suspect]
     Indication: ACNE
     Dosage: 408 MG MILLIGRAM(S), 1 IN 1 D
     Dates: start: 20090119, end: 20090209
  3. CHLORAMPHENICOL [Concomitant]

REACTIONS (1)
  - GLOMERULONEPHRITIS MINIMAL LESION [None]
